FAERS Safety Report 14921370 (Version 1)
Quarter: 2018Q2

REPORT INFORMATION
  Report Type: Spontaneous
  Country: GR (occurrence: GR)
  Receive Date: 20180522
  Receipt Date: 20180522
  Transmission Date: 20180711
  Serious: Yes (Other)
  Sender: FDA-Public Use
  Company Number: GR-ROCHE-2124653

PATIENT
  Age: 74 Year
  Sex: Male

DRUGS (1)
  1. GAZYVARO [Suspect]
     Active Substance: OBINUTUZUMAB
     Indication: CHRONIC LYMPHOCYTIC LEUKAEMIA
     Route: 065
     Dates: start: 20180320

REACTIONS (10)
  - Hypotension [Recovered/Resolved]
  - Dysphonia [Recovered/Resolved]
  - Dyspnoea [Recovered/Resolved]
  - Hypoxia [Recovered/Resolved]
  - Nausea [Recovered/Resolved]
  - Angioedema [Recovered/Resolved]
  - Pruritus generalised [Recovered/Resolved]
  - Chest discomfort [Recovered/Resolved]
  - Rash pruritic [Recovered/Resolved]
  - Bronchospasm [Recovered/Resolved]
